FAERS Safety Report 18723388 (Version 1)
Quarter: 2021Q1

REPORT INFORMATION
  Report Type: Spontaneous
  Country: US (occurrence: US)
  Receive Date: 20210107
  Receipt Date: 20210107
  Transmission Date: 20210419
  Serious: Yes (Hospitalization)
  Sender: FDA-Public Use
  Company Number: None

PATIENT
  Age: 20 Year
  Sex: Female

DRUGS (3)
  1. HYPERSAL NEB [Concomitant]
  2. PULMOZYME [Suspect]
     Active Substance: DORNASE ALFA
     Indication: CYSTIC FIBROSIS
     Dosage: DOSAGE: 1 VIAL
     Route: 055
     Dates: start: 20190106
  3. TOBI NEB [Concomitant]

REACTIONS (2)
  - Lung disorder [None]
  - Respiratory disorder [None]

NARRATIVE: CASE EVENT DATE: 20210107
